FAERS Safety Report 25733530 (Version 2)
Quarter: 2025Q4

REPORT INFORMATION
  Report Type: Spontaneous
  Country: EU (occurrence: EU)
  Receive Date: 20250828
  Receipt Date: 20251013
  Transmission Date: 20260118
  Serious: Yes (Hospitalization)
  Sender: AMGEN
  Company Number: None

PATIENT
  Age: 83 Year
  Sex: Female
  Weight: 60 kg

DRUGS (14)
  1. KYPROLIS [Suspect]
     Active Substance: CARFILZOMIB
     Indication: Plasma cell myeloma
     Dosage: 32 MILLIGRAM
     Route: 040
     Dates: start: 20240409, end: 20240409
  2. KYPROLIS [Suspect]
     Active Substance: CARFILZOMIB
     Dosage: ALLLL COURSES D8 AND D15
     Route: 040
     Dates: start: 20240409, end: 20250114
  3. REVLIMID [Suspect]
     Active Substance: LENALIDOMIDE
     Indication: Plasma cell myeloma
     Dosage: D1-D21, CURE OF 28 DAYS
     Route: 048
     Dates: start: 20220705, end: 20221219
  4. REVLIMID [Suspect]
     Active Substance: LENALIDOMIDE
     Dosage: D1-D21, CURE OF 28 DAYS
     Route: 048
     Dates: start: 20221220, end: 20240220
  5. DEXAMETHASONE [Suspect]
     Active Substance: DEXAMETHASONE
     Indication: Plasma cell myeloma
     Dosage: 10 MILLIGRAM
     Route: 048
     Dates: start: 20240409, end: 20250114
  6. POMALIDOMIDE [Suspect]
     Active Substance: POMALIDOMIDE
     Indication: Plasma cell myeloma
     Dosage: D1-D21, CURE OF 28 DAYS
     Route: 048
     Dates: start: 20240409, end: 20240506
  7. POMALIDOMIDE [Suspect]
     Active Substance: POMALIDOMIDE
     Dosage: D1-D21, CURE OF 28 DAYS
     Route: 048
     Dates: start: 20240507, end: 20241118
  8. POMALIDOMIDE [Suspect]
     Active Substance: POMALIDOMIDE
     Dosage: D1-D21, CURE OF 28 DAYS
     Route: 048
     Dates: start: 20241119, end: 20250207
  9. DEXAMETHASONE ACETATE [Suspect]
     Active Substance: DEXAMETHASONE ACETATE
     Indication: Plasma cell myeloma
     Dosage: 10 MILLIGRAM
     Route: 048
     Dates: start: 20240409, end: 20250114
  10. BACTRIM [Concomitant]
     Active Substance: SULFAMETHOXAZOLE\TRIMETHOPRIM
     Indication: Opportunistic infection prophylaxis
     Dosage: 1 DOSAGE FORM
     Route: 048
     Dates: start: 20170117, end: 20250114
  11. COUMADIN [Concomitant]
     Active Substance: WARFARIN SODIUM
     Indication: Cardiovascular event prophylaxis
     Dosage: 3 DOSAGE FORM, QD
     Route: 048
  12. Calcidose [Concomitant]
     Indication: Osteoporosis
     Dosage: 1 DOSAGE FORM, QD
     Route: 048
  13. COVERAM [Concomitant]
     Active Substance: AMLODIPINE\PERINDOPRIL
     Indication: Hypertension
     Dosage: 1 DOSAGE FORM, QD
     Route: 048
  14. ERYTHROPOIETIN [Concomitant]
     Active Substance: ERYTHROPOIETIN
     Indication: Anaemia
     Dosage: 1 DOSAGE FORM, QD
     Route: 058

REACTIONS (1)
  - Myelodysplastic syndrome with excess blasts [Not Recovered/Not Resolved]

NARRATIVE: CASE EVENT DATE: 20250117
